FAERS Safety Report 5911221-0 (Version None)
Quarter: 2008Q4

REPORT INFORMATION
  Report Type: 
  Country: None (occurrence: None)
  Receive Date: 20081007
  Receipt Date: 20081002
  Transmission Date: 20090506
  Serious: Yes (Hospitalization)
  Sender: FDA-Public Use
  Company Number: FR-WYE-G02273108

PATIENT
  Sex: Male

DRUGS (11)
  1. TAZOCILLINE [Suspect]
     Indication: BRONCHIAL DISORDER
     Dosage: 16 G TOTAL DAILY
     Route: 042
     Dates: start: 20080409, end: 20080410
  2. CREON [Concomitant]
     Dosage: UNKNOWN
     Route: 048
  3. TOCO [Concomitant]
     Dosage: UNKNOWN
     Route: 048
  4. URSOLVAN-200 [Concomitant]
     Dosage: UNKNOWN
     Route: 048
  5. VITAMIN K1 [Concomitant]
     Dosage: UNKNOWN
  6. NEXIUM [Concomitant]
     Dosage: UNKNOWN
  7. A 313 [Concomitant]
     Dosage: UNKNOWN
  8. MULTIVITAMIN [Concomitant]
     Dosage: UNKNOWN
     Route: 048
  9. ULTRA-LEVURE [Concomitant]
     Dosage: UNKNOWN
     Route: 048
  10. NEBCIN [Concomitant]
     Indication: BRONCHIAL DISORDER
     Dosage: 500 MG TOTAL DAILY
     Route: 042
     Dates: start: 20080409
  11. SALAZOPYRINE [Concomitant]
     Dosage: UNKNOWN
     Route: 048

REACTIONS (5)
  - HEADACHE [None]
  - HYPERTHERMIA [None]
  - INFUSION SITE HAEMORRHAGE [None]
  - PURPURA [None]
  - THROMBOCYTOPENIA [None]
